FAERS Safety Report 4398331-7 (Version None)
Quarter: 2004Q3

REPORT INFORMATION
  Report Type: 
  Country: None (occurrence: None)
  Receive Date: 20040712
  Receipt Date: 20040629
  Transmission Date: 20050211
  Serious: Yes (Hospitalization)
  Sender: FDA-Public Use
  Company Number: 2004034306

PATIENT
  Age: 15 Year
  Sex: Male
  Weight: 75 kg

DRUGS (4)
  1. ZOLOFT [Suspect]
     Indication: DEPRESSION
     Dosage: 100 MG (100 MG, 1 IN 1 D), ORAL
     Route: 048
     Dates: end: 20040513
  2. BUDESONIDE (BUDESONIDE) [Concomitant]
  3. SALBUTAMOL (SALBUTAMOL) [Concomitant]
  4. SALBUTAMOL SULFATE (SALBUTAMOL SULFATE) [Concomitant]

REACTIONS (4)
  - DISORIENTATION [None]
  - MENINGITIS [None]
  - MOOD SWINGS [None]
  - RESPIRATORY ARREST [None]
